FAERS Safety Report 6971054-3 (Version None)
Quarter: 2010Q3

REPORT INFORMATION
  Report Type: 
  Country: None (occurrence: None)
  Receive Date: 20100908
  Receipt Date: 20100827
  Transmission Date: 20110219
  Serious: Yes (Other)
  Sender: FDA-Public Use
  Company Number: US-PFIZER INC-2010076459

PATIENT
  Sex: Female

DRUGS (6)
  1. CHANTIX [Suspect]
     Indication: SMOKING CESSATION THERAPY
     Dosage: UNK
     Route: 048
     Dates: start: 20090601, end: 20090701
  2. CELEXA [Concomitant]
     Indication: DEPRESSION
     Dosage: UNK
     Dates: start: 19930101
  3. CITALOPRAM [Concomitant]
     Indication: DEPRESSION
     Dosage: UNK
     Dates: start: 19930101
  4. METHADONE [Concomitant]
     Indication: PAIN
     Dosage: UNK
     Dates: start: 20080101
  5. XANAX [Concomitant]
     Indication: DEPRESSION
     Dosage: UNK
     Dates: start: 20080901
  6. XANAX [Concomitant]
     Indication: ANXIETY

REACTIONS (6)
  - ANGER [None]
  - ANXIETY [None]
  - ATTENTION DEFICIT/HYPERACTIVITY DISORDER [None]
  - MAJOR DEPRESSION [None]
  - POST-TRAUMATIC STRESS DISORDER [None]
  - SUICIDE ATTEMPT [None]
